FAERS Safety Report 9013000 (Version 1)
Quarter: 2013Q1

REPORT INFORMATION
  Report Type: Spontaneous
  Country: US (occurrence: US)
  Receive Date: 20130114
  Receipt Date: 20130114
  Transmission Date: 20140127
  Serious: Yes (Other)
  Sender: FDA-Public Use
  Company Number: US-ASTRAZENECA-2013SE01807

PATIENT
  Age: 60 Year
  Sex: Male
  Weight: 83.9 kg

DRUGS (2)
  1. CRESTOR [Suspect]
     Indication: BLOOD CHOLESTEROL INCREASED
     Route: 048
  2. SUNSCREEN [Concomitant]

REACTIONS (3)
  - Skin mass [Unknown]
  - Erythema [Unknown]
  - Erythema [Unknown]
